FAERS Safety Report 6553765-7 (Version None)
Quarter: 2010Q1

REPORT INFORMATION
  Report Type: 
  Country: None (occurrence: None)
  Receive Date: 20100125
  Receipt Date: 20100125
  Transmission Date: 20100710
  Serious: Yes (Other)
  Sender: FDA-Public Use
  Company Number: None

PATIENT
  Sex: Female
  Weight: 50.8029 kg

DRUGS (1)
  1. TRIMETHOPRIM + SULFAMETHOXAZOLE [Suspect]
     Indication: OROPHARYNGEAL PAIN
     Dosage: 1 TAB 2X DAILY FOR 10 DAYS
     Dates: start: 20091117, end: 20091124

REACTIONS (8)
  - BLOOD SODIUM DECREASED [None]
  - CHROMATURIA [None]
  - DECREASED APPETITE [None]
  - HEADACHE [None]
  - MUSCULAR WEAKNESS [None]
  - NECK PAIN [None]
  - VISION BLURRED [None]
  - WEIGHT DECREASED [None]
